FAERS Safety Report 13573754 (Version 2)
Quarter: 2017Q2

REPORT INFORMATION
  Report Type: Report from Study
  Country: JP (occurrence: JP)
  Receive Date: 20170523
  Receipt Date: 20170531
  Transmission Date: 20170830
  Serious: Yes (Hospitalization)
  Sender: FDA-Public Use
  Company Number: JP-ASTELLAS-2017JP008827AA

PATIENT
  Age: 75 Year
  Sex: Male
  Weight: 60 kg

DRUGS (15)
  1. XYZAL [Concomitant]
     Active Substance: LEVOCETIRIZINE DIHYDROCHLORIDE
     Indication: ERYTHEMA
     Route: 048
     Dates: start: 20170124
  2. SENNOSIDE                          /00571901/ [Concomitant]
     Active Substance: SENNOSIDES A AND B
     Indication: CONSTIPATION
     Route: 048
     Dates: start: 20170502
  3. HIRUDOID                           /00723701/ [Concomitant]
     Active Substance: PENTOSAN POLYSULFATE SODIUM
     Indication: PROPHYLAXIS
     Dosage: UNKNOWN DOSE, TWICE DAILY
     Route: 061
     Dates: start: 20161209
  4. AZUNOL #1 [Concomitant]
     Indication: STOMATITIS
     Dosage: UNK UNK, THRICE DAILY
     Route: 061
     Dates: start: 20170207
  5. MUCODYNE [Concomitant]
     Active Substance: CARBOCYSTEINE
     Indication: NON-SMALL CELL LUNG CANCER
     Route: 048
     Dates: start: 20170228
  6. MAGNESIUM OXIDE. [Concomitant]
     Active Substance: MAGNESIUM OXIDE
     Indication: CONSTIPATION
     Route: 048
     Dates: start: 20161114
  7. RINDERON VG [Concomitant]
     Active Substance: BETAMETHASONE VALERATE\GENTAMICIN SULFATE
     Indication: ERYTHEMA
     Dosage: UNK UNK, TWICE DAILY
     Route: 061
     Dates: start: 20170112
  8. SEKICODE                           /02011101/ [Concomitant]
     Indication: NON-SMALL CELL LUNG CANCER
     Route: 048
     Dates: start: 20170502
  9. ERLOTINIB [Suspect]
     Active Substance: ERLOTINIB
     Indication: NON-SMALL CELL LUNG CANCER
     Route: 048
     Dates: start: 20161209, end: 20170206
  10. OXYCONTIN [Concomitant]
     Active Substance: OXYCODONE HYDROCHLORIDE
     Indication: CANCER PAIN
     Route: 048
     Dates: start: 20170502
  11. OXINORM                            /00045603/ [Concomitant]
     Active Substance: OXYCODONE HYDROCHLORIDE
     Indication: CANCER PAIN
     Dosage: 1 DF, AS NEEDED, WHEN THE PATIENT FEELS PAIN
     Route: 048
     Dates: start: 20170502
  12. ERLOTINIB [Suspect]
     Active Substance: ERLOTINIB
     Route: 048
     Dates: start: 20170214, end: 20170515
  13. AMLODIPINE                         /00972402/ [Concomitant]
     Active Substance: AMLODIPINE BESYLATE
     Indication: HYPERTENSION
     Route: 048
     Dates: start: 201411
  14. MOHRUS [Concomitant]
     Active Substance: KETOPROFEN
     Indication: CANCER PAIN
     Dosage: UNKNOWN DOSE
     Route: 061
     Dates: start: 20170228
  15. LOXOPROFEN NA [Concomitant]
     Active Substance: LOXOPROFEN SODIUM
     Indication: CANCER PAIN
     Route: 048
     Dates: start: 20170502

REACTIONS (1)
  - Interstitial lung disease [Not Recovered/Not Resolved]

NARRATIVE: CASE EVENT DATE: 20170510
